FAERS Safety Report 24240168 (Version 1)
Quarter: 2024Q3

REPORT INFORMATION
  Report Type: Spontaneous
  Country: FR (occurrence: FR)
  Receive Date: 20240822
  Receipt Date: 20240822
  Transmission Date: 20241017
  Serious: Yes (Hospitalization, Other)
  Sender: MYLAN
  Company Number: FR-TEVA-VS-3230639

PATIENT
  Age: 38 Year
  Sex: Male

DRUGS (9)
  1. DOXYCYCLINE [Suspect]
     Active Substance: DOXYCYCLINE\DOXYCYCLINE HYCLATE
     Indication: Mycoplasma infection
     Dosage: UNK
     Route: 065
     Dates: start: 20230920
  2. AMOXICILLIN [Suspect]
     Active Substance: AMOXICILLIN
     Indication: Mycoplasma infection
     Dosage: UNK
     Route: 065
     Dates: start: 20230801
  3. ECONAZOLE [Suspect]
     Active Substance: ECONAZOLE
     Indication: Penile erythema
     Dosage: UNK
     Route: 065
  4. ECONAZOLE [Suspect]
     Active Substance: ECONAZOLE
     Indication: Penile swelling
  5. ECONAZOLE [Suspect]
     Active Substance: ECONAZOLE
     Indication: Penile pain
  6. MOXIFLOXACIN HYDROCHLORIDE [Suspect]
     Active Substance: MOXIFLOXACIN HYDROCHLORIDE\MOXIFLOXACIN HYDROCHLORIDE MONOHYDRATE
     Indication: Mycoplasma infection
     Dosage: 400 MILLIGRAM, QD (1 TABLET PER DAY FOR 7 DAYS)
     Route: 065
     Dates: start: 20230912
  7. DOXYCYCLINE [Suspect]
     Active Substance: DOXYCYCLINE\DOXYCYCLINE HYCLATE
     Indication: Mycoplasma infection
     Dosage: 2 DOSAGE FORM, QD (1 TABLET IN THE MORNING AND IN THE EVENING FOR 7 DAYS)
     Route: 065
     Dates: start: 20230912
  8. AZITHROMYCIN [Concomitant]
     Active Substance: AZITHROMYCIN
     Indication: Paraesthesia
     Dosage: UNK
     Route: 065
  9. CEFTRIAXONE [Concomitant]
     Active Substance: CEFTRIAXONE\CEFTRIAXONE SODIUM
     Indication: Paraesthesia
     Dosage: UNK
     Route: 065

REACTIONS (10)
  - Penile erythema [Recovering/Resolving]
  - Fixed eruption [Recovering/Resolving]
  - Phimosis [Recovering/Resolving]
  - Penile blister [Recovering/Resolving]
  - Penile swelling [Recovering/Resolving]
  - Penile oedema [Recovering/Resolving]
  - Penile pain [Recovering/Resolving]
  - Pruritus genital [Recovering/Resolving]
  - Balanoposthitis [Recovering/Resolving]
  - Drug ineffective [Unknown]

NARRATIVE: CASE EVENT DATE: 20230920
